FAERS Safety Report 9384132 (Version 1)
Quarter: 2013Q3

REPORT INFORMATION
  Report Type: Spontaneous
  Country: FR (occurrence: FR)
  Receive Date: 20130705
  Receipt Date: 20130705
  Transmission Date: 20140515
  Serious: Yes (Death, Hospitalization)
  Sender: FDA-Public Use
  Company Number: FR-ROCHE-1243852

PATIENT
  Age: 83 Year
  Sex: Male

DRUGS (2)
  1. RITUXIMAB [Suspect]
     Indication: VASCULITIS
     Route: 065
  2. PREDNISONE [Concomitant]
     Route: 065

REACTIONS (5)
  - Pneumocystis jirovecii infection [Fatal]
  - Sepsis [Unknown]
  - Renal failure [Unknown]
  - Vasculitis [Unknown]
  - Purpura [Unknown]
